FAERS Safety Report 6523482-8 (Version None)
Quarter: 2009Q4

REPORT INFORMATION
  Report Type: 
  Country: None (occurrence: None)
  Receive Date: 20091231
  Receipt Date: 20091218
  Transmission Date: 20100525
  Serious: Yes (Hospitalization, Other)
  Sender: FDA-Public Use
  Company Number: PHHY2009JP54623

PATIENT
  Age: 36 Year
  Sex: Male

DRUGS (14)
  1. TEGRETOL [Suspect]
     Indication: SCHIZOPHRENIA
     Dosage: 400 MG/DAY
     Route: 048
     Dates: start: 19950101
  2. TEGRETOL [Suspect]
     Dosage: 400 MG
     Route: 048
     Dates: start: 20031001
  3. HALOPERIDOL [Suspect]
     Indication: SCHIZOPHRENIA
     Dosage: 15 MG DAILY
     Route: 048
     Dates: start: 19950101
  4. HALOPERIDOL [Suspect]
     Dosage: 21 MG DAILY
     Route: 048
     Dates: end: 20031001
  5. HALOPERIDOL [Suspect]
     Dosage: 28 MG DAILY
     Route: 048
     Dates: start: 20031001, end: 20040101
  6. HALOPERIDOL [Suspect]
     Dosage: 12 MG DAILY
     Route: 048
     Dates: start: 20040101
  7. HALOPERIDOL [Suspect]
     Dosage: UNK
     Route: 030
     Dates: end: 20031117
  8. ZOTEPINE [Concomitant]
     Indication: SCHIZOPHRENIA
     Dosage: 150 MG/DAY
     Route: 048
  9. ZOTEPINE [Concomitant]
     Dosage: 250 MG/DAY
     Route: 048
     Dates: end: 20040101
  10. PIMOZIDE [Concomitant]
     Indication: SCHIZOPHRENIA
     Dosage: 20 MG/DAY
     Route: 048
  11. LEVOMEPROMAZINE MALEATE [Concomitant]
     Indication: SCHIZOPHRENIA
     Dosage: 100 MG DAILY
     Route: 048
     Dates: start: 19950101
  12. LEVOMEPROMAZINE MALEATE [Concomitant]
     Dosage: 250 MG DAILY
     Route: 048
  13. LEVOMEPROMAZINE MALEATE [Concomitant]
     Dosage: 200 MG/DAY
     Route: 048
  14. LEVOMEPROMAZINE HYDROCHLORIDE [Concomitant]
     Indication: SCHIZOPHRENIA
     Dosage: UNK
     Route: 030
     Dates: end: 20031117

REACTIONS (7)
  - CONVULSION [None]
  - HALLUCINATION, AUDITORY [None]
  - HYPONATRAEMIA [None]
  - LOSS OF CONSCIOUSNESS [None]
  - POLYDIPSIA [None]
  - PSYCHOMOTOR HYPERACTIVITY [None]
  - PSYCHOTIC DISORDER [None]
